FAERS Safety Report 12641732 (Version 1)
Quarter: 2016Q3

REPORT INFORMATION
  Report Type: Spontaneous
  Country: US (occurrence: US)
  Receive Date: 20160810
  Receipt Date: 20160810
  Transmission Date: 20161109
  Serious: No
  Sender: FDA-Public Use
  Company Number: US-IMPAX LABORATORIES, INC-2015COR00170

PATIENT
  Sex: Female
  Weight: 97 kg

DRUGS (5)
  1. UNSPECIFIED SUPPLEMENTS [Concomitant]
  2. VITAMIN E [Concomitant]
     Active Substance: .ALPHA.-TOCOPHEROL
  3. METHENAMINE HIPPURATE. [Suspect]
     Active Substance: METHENAMINE HIPPURATE
     Dosage: 1 TABLETS, 2X/DAY
     Route: 048
  4. UNSPECIFIED MEDICATIONS [Concomitant]
     Active Substance: UNSPECIFIED INGREDIENT
  5. VITAMIN D [Concomitant]
     Active Substance: CHOLECALCIFEROL

REACTIONS (2)
  - Off label use [Unknown]
  - Intentional product misuse [Unknown]
